FAERS Safety Report 12140028 (Version 1)
Quarter: 2016Q1

REPORT INFORMATION
  Report Type: Spontaneous
  Country: US (occurrence: None)
  Receive Date: 20160302
  Receipt Date: 20160302
  Transmission Date: 20160526
  Serious: Yes (Other)
  Sender: FDA-Public Use
  Company Number: None

PATIENT
  Age: 35 Year
  Sex: Female
  Weight: 63 kg

DRUGS (6)
  1. CARDURA [Concomitant]
     Active Substance: DOXAZOSIN MESYLATE
  2. COREG [Concomitant]
     Active Substance: CARVEDILOL
  3. CLONIDINE TRANSDERMAL SYSTEM [Suspect]
     Active Substance: CLONIDINE
     Indication: HYPERTENSION
     Dosage: 1 PATCH PER WEEK APPLIED AS MEDICATED PATCH TO SKIN
     Route: 062
     Dates: start: 20151008, end: 20151210
  4. ADDERALL [Concomitant]
     Active Substance: AMPHETAMINE ASPARTATE\AMPHETAMINE SULFATE\DEXTROAMPHETAMINE SACCHARATE\DEXTROAMPHETAMINE SULFATE
  5. IBESARTAN [Concomitant]
  6. PHOSLO [Concomitant]
     Active Substance: CALCIUM ACETATE

REACTIONS (4)
  - Drug ineffective [None]
  - Blood pressure increased [None]
  - Product substitution issue [None]
  - Blood pressure decreased [None]

NARRATIVE: CASE EVENT DATE: 20151008
